FAERS Safety Report 25866350 (Version 1)
Quarter: 2025Q3

REPORT INFORMATION
  Report Type: Spontaneous
  Country: US (occurrence: US)
  Receive Date: 20250930
  Receipt Date: 20250930
  Transmission Date: 20251021
  Serious: Yes (Hospitalization, Other)
  Sender: SANOFI AVENTIS
  Company Number: US-SA-2025SA289153

PATIENT
  Age: 71 Year
  Sex: Female
  Weight: 57.22 kg

DRUGS (1)
  1. DUPIXENT [Suspect]
     Active Substance: DUPILUMAB
     Indication: Asthma
     Dosage: 300 MG, QOW
     Route: 058
     Dates: end: 2025

REACTIONS (6)
  - Pneumonia [Unknown]
  - Dehydration [Unknown]
  - Pain [Unknown]
  - Pulmonary mass [Unknown]
  - Weight decreased [Recovering/Resolving]
  - Headache [Unknown]

NARRATIVE: CASE EVENT DATE: 20220101
